FAERS Safety Report 10777384 (Version 1)
Quarter: 2015Q1

REPORT INFORMATION
  Report Type: Spontaneous
  Country: US (occurrence: None)
  Receive Date: 20150206
  Receipt Date: 20150206
  Transmission Date: 20150721
  Serious: No
  Sender: FDA-Public Use
  Company Number: None

PATIENT
  Age: 45 Year
  Sex: Female
  Weight: 127.01 kg

DRUGS (1)
  1. DEPO-PROVERA [Suspect]
     Active Substance: MEDROXYPROGESTERONE ACETATE
     Indication: CONTRACEPTION
     Dosage: EVERY 12 WEEKS
     Route: 030
     Dates: start: 20140925, end: 20141211

REACTIONS (6)
  - Menstruation irregular [None]
  - Haematocrit decreased [None]
  - Vaginal haemorrhage [None]
  - Menorrhagia [None]
  - Haemoglobin decreased [None]
  - Serum ferritin abnormal [None]

NARRATIVE: CASE EVENT DATE: 20141009
